FAERS Safety Report 7466131-7 (Version None)
Quarter: 2011Q2

REPORT INFORMATION
  Report Type: 
  Country: None (occurrence: None)
  Receive Date: 20110509
  Receipt Date: 20100726
  Transmission Date: 20111010
  Serious: Yes (Hospitalization, Other)
  Sender: FDA-Public Use
  Company Number: US-ALEXION-A201000762

PATIENT
  Sex: Female

DRUGS (1)
  1. SOLIRIS [Suspect]
     Indication: PAROXYSMAL NOCTURNAL HAEMOGLOBINURIA
     Dosage: UNK

REACTIONS (18)
  - WEIGHT DECREASED [None]
  - APHAGIA [None]
  - GASTRITIS [None]
  - HERPES SIMPLEX [None]
  - BLOOD PRESSURE INCREASED [None]
  - HAEMOGLOBINURIA [None]
  - HAEMATEMESIS [None]
  - HAEMOGLOBIN DECREASED [None]
  - CONVULSION [None]
  - PAIN IN EXTREMITY [None]
  - EROSIVE OESOPHAGITIS [None]
  - PLATELET COUNT DECREASED [None]
  - ABDOMINAL PAIN UPPER [None]
  - NECROSIS [None]
  - GRAND MAL CONVULSION [None]
  - NAUSEA [None]
  - OROPHARYNGEAL PAIN [None]
  - OEDEMA PERIPHERAL [None]
